FAERS Safety Report 18369845 (Version 3)
Quarter: 2020Q4

REPORT INFORMATION
  Report Type: Other
  Country: US (occurrence: US)
  Receive Date: 20201012
  Receipt Date: 20201113
  Transmission Date: 20210114
  Serious: Yes (Other)
  Sender: FDA-Public Use
  Company Number: US-INTERCEPT-PM2020001786

PATIENT
  Age: 32 Year
  Sex: Male

DRUGS (4)
  1. AZATHIOPRINE. [Concomitant]
     Active Substance: AZATHIOPRINE
     Indication: AUTOIMMUNE HEPATITIS
     Dosage: 150 MG, QD
     Route: 048
  2. CALCIUM [Concomitant]
     Active Substance: CALCIUM
  3. URSODIOL. [Concomitant]
     Active Substance: URSODIOL
     Indication: AUTOIMMUNE HEPATITIS
     Dosage: 500 MG, BID
     Route: 048
     Dates: start: 20181215
  4. OCALIVA [Suspect]
     Active Substance: OBETICHOLIC ACID
     Indication: PRIMARY BILIARY CHOLANGITIS
     Dosage: 5 MG, QD
     Route: 048
     Dates: start: 20200615

REACTIONS (12)
  - Portal hypertensive gastropathy [Unknown]
  - Pruritus [Not Recovered/Not Resolved]
  - Haemoglobin abnormal [Unknown]
  - Haematocrit abnormal [Unknown]
  - Nausea [Unknown]
  - Dyspepsia [Unknown]
  - Pain [Unknown]
  - Platelet count abnormal [Unknown]
  - Blood glucose abnormal [Unknown]
  - Aspartate aminotransferase abnormal [Unknown]
  - Red blood cell count abnormal [Unknown]
  - Blood creatinine abnormal [Unknown]

NARRATIVE: CASE EVENT DATE: 2020
